FAERS Safety Report 20643239 (Version 1)
Quarter: 2022Q1

REPORT INFORMATION
  Report Type: Spontaneous
  Country: US (occurrence: US)
  Receive Date: 20220328
  Receipt Date: 20220328
  Transmission Date: 20220423
  Serious: No
  Sender: FDA-Public Use
  Company Number: US-NOVARTISTESTPH-NVSC2022US069729

PATIENT
  Sex: Male

DRUGS (2)
  1. EVEROLIMUS [Suspect]
     Active Substance: EVEROLIMUS
     Indication: Renal cancer
     Dosage: UNK
     Route: 065
  2. LENVIMA [Suspect]
     Active Substance: LENVATINIB
     Indication: Renal cancer
     Dosage: 18 MG (10 MG/ 2-4 MG) (5 DAY PK- COMM)
     Route: 048
     Dates: start: 20220210

REACTIONS (4)
  - Hypersensitivity [Unknown]
  - Swelling [Unknown]
  - Movement disorder [Unknown]
  - Pain [Unknown]
